FAERS Safety Report 8346593-3 (Version None)
Quarter: 2012Q2

REPORT INFORMATION
  Report Type: 
  Country: None (occurrence: None)
  Receive Date: 20120509
  Receipt Date: 20120503
  Transmission Date: 20120825
  Serious: Yes (Other)
  Sender: FDA-Public Use
  Company Number: PHEH2012US009490

PATIENT
  Age: 50 Year
  Sex: Female

DRUGS (1)
  1. COMBIPATCH [Suspect]
     Dosage: 50/150 ( ESTRADIOL/ NORETHISTERONE ACETATE) TWICE IN WEEK
     Route: 062
     Dates: start: 20110101, end: 20110101

REACTIONS (2)
  - ALOPECIA [None]
  - UTERINE HAEMORRHAGE [None]
